FAERS Safety Report 5831053-1 (Version None)
Quarter: 2008Q3

REPORT INFORMATION
  Report Type: 
  Country: None (occurrence: None)
  Receive Date: 20080801
  Receipt Date: 20080320
  Transmission Date: 20090109
  Serious: No
  Sender: FDA-Public Use
  Company Number: US-BRISTOL-MYERS SQUIBB COMPANY-14122113

PATIENT
  Age: 71 Year
  Sex: Female
  Weight: 78 kg

DRUGS (14)
  1. COUMADIN [Suspect]
  2. LOVENOX [Suspect]
     Indication: TRANSIENT ISCHAEMIC ATTACK
     Dosage: INJECTION
     Dates: start: 20080201
  3. ASPIRIN [Suspect]
  4. NOVOLOG [Concomitant]
  5. LANTUS [Concomitant]
  6. TOPROL-XL [Concomitant]
  7. GLYBURIDE [Concomitant]
  8. PLAVIX [Concomitant]
  9. UBIDECARENONE [Concomitant]
  10. CINNARIZINE [Concomitant]
  11. ERGOCALCIFEROL [Concomitant]
  12. FISH OIL [Concomitant]
  13. TURMERIC [Concomitant]
  14. DANDELION [Concomitant]

REACTIONS (3)
  - INJECTION SITE HAEMATOMA [None]
  - MALAISE [None]
  - PAIN IN EXTREMITY [None]
